FAERS Safety Report 8886382 (Version 2)
Quarter: 2013Q1

REPORT INFORMATION
  Report Type: Report from Study
  Country: BR (occurrence: BR)
  Receive Date: 20121105
  Receipt Date: 20130204
  Transmission Date: 20140127
  Serious: Yes (Hospitalization)
  Sender: FDA-Public Use
  Company Number: BR-ASTRAZENECA-2012SE83066

PATIENT
  Age: 821 Month
  Sex: Female

DRUGS (2)
  1. NEXIUM [Suspect]
     Indication: GASTRITIS
     Route: 048
     Dates: start: 2011
  2. INTERFERON [Suspect]
     Indication: PROPHYLACTIC CHEMOTHERAPY
     Route: 065
     Dates: start: 2012

REACTIONS (2)
  - Skin cancer [Recovered/Resolved]
  - Tooth demineralisation [Not Recovered/Not Resolved]
